FAERS Safety Report 15006995 (Version 2)
Quarter: 2019Q1

REPORT INFORMATION
  Report Type: Spontaneous
  Country: US (occurrence: US)
  Receive Date: 20180613
  Receipt Date: 20190212
  Transmission Date: 20190417
  Serious: Yes (Hospitalization, Disabling)
  Sender: FDA-Public Use
  Company Number: US-JNJFOC-20180611531

PATIENT
  Age: 83 Year
  Sex: Female

DRUGS (1)
  1. INVOKANA [Suspect]
     Active Substance: CANAGLIFLOZIN
     Indication: TYPE 2 DIABETES MELLITUS
     Route: 048
     Dates: start: 20150601

REACTIONS (3)
  - Osteomyelitis [Unknown]
  - Leg amputation [Unknown]
  - Sepsis [Unknown]

NARRATIVE: CASE EVENT DATE: 201704
